FAERS Safety Report 7250421-7 (Version None)
Quarter: 2011Q1

REPORT INFORMATION
  Report Type: 
  Country: None (occurrence: None)
  Receive Date: 20110118
  Receipt Date: 20110108
  Transmission Date: 20110831
  Serious: Yes (Other)
  Sender: FDA-Public Use
  Company Number: 2011MA000274

PATIENT
  Age: 61 Year
  Sex: Male

DRUGS (3)
  1. RAMIPRIL [Suspect]
     Indication: HYPERTENSION
     Dosage: 5 MG; BID;
     Dates: start: 20100701
  2. LANSOPRAZOLE [Suspect]
     Indication: PRODUCT USED FOR UNKNOWN INDICATION
  3. SIMVASTATIN [Suspect]
     Indication: PRODUCT USED FOR UNKNOWN INDICATION

REACTIONS (6)
  - MUSCLE SPASMS [None]
  - DYSPNOEA [None]
  - GAIT DISTURBANCE [None]
  - LYMPHADENOPATHY [None]
  - DIARRHOEA [None]
  - RENAL DISORDER [None]
